FAERS Safety Report 8977911 (Version 2)
Quarter: 2013Q2

REPORT INFORMATION
  Report Type: Spontaneous
  Country: DK (occurrence: DK)
  Receive Date: 20121220
  Receipt Date: 20130625
  Transmission Date: 20140414
  Serious: Yes (Other)
  Sender: FDA-Public Use
  Company Number: PHHY2012DK115287

PATIENT
  Age: 66 Year
  Sex: Female

DRUGS (4)
  1. ZOMETA [Suspect]
     Indication: METASTASES TO BONE
     Dosage: 4 MG/100 ML EVERY 6 WEEKS
     Route: 042
     Dates: start: 20101014
  2. EPIRUBICIN [Concomitant]
     Indication: BREAST CANCER
     Dosage: UNK
     Route: 042
     Dates: start: 20111206
  3. SENDOXAN [Concomitant]
     Indication: BREAST CANCER
     Route: 042
     Dates: start: 20111206
  4. FLUOROURCIL [Concomitant]
     Indication: BREAST CANCER
     Dosage: UNK
     Route: 042
     Dates: start: 20111206

REACTIONS (3)
  - Osteonecrosis of jaw [Not Recovered/Not Resolved]
  - Breath odour [Unknown]
  - Exposed bone in jaw [Unknown]
